FAERS Safety Report 4644769-X (Version None)
Quarter: 2005Q2

REPORT INFORMATION
  Report Type: 
  Country: None (occurrence: None)
  Receive Date: 20050426
  Receipt Date: 20050413
  Transmission Date: 20051028
  Serious: Yes (Hospitalization)
  Sender: FDA-Public Use
  Company Number: US-JNJFOC-20050403516

PATIENT
  Sex: Female

DRUGS (13)
  1. DURAGESIC [Suspect]
     Route: 062
  2. DURAGESIC [Suspect]
     Route: 062
  3. DURAGESIC [Suspect]
     Route: 062
  4. OXYCODONE [Concomitant]
     Indication: DRUG USE FOR UNKNOWN INDICATION
     Route: 049
  5. SEROQUEL [Concomitant]
     Indication: INSOMNIA
     Route: 049
  6. REMERON [Concomitant]
     Indication: DEPRESSION
     Route: 049
  7. KLONOPIN [Concomitant]
     Route: 049
  8. KLONOPIN [Concomitant]
     Indication: ANXIETY
     Route: 049
  9. TORADOL [Concomitant]
     Indication: DRUG USE FOR UNKNOWN INDICATION
     Dosage: AS NEEDED
     Route: 049
  10. DIAMOX [Concomitant]
     Indication: DRUG USE FOR UNKNOWN INDICATION
     Route: 049
  11. TOPAMAX [Concomitant]
     Indication: MIGRAINE
     Route: 049
  12. ZOFRAN [Concomitant]
     Indication: DRUG USE FOR UNKNOWN INDICATION
     Dosage: AS NEEDED
     Route: 049
  13. PHENERGAN [Concomitant]
     Indication: DRUG USE FOR UNKNOWN INDICATION
     Dosage: 25 MG, 1 EVERY 6 TO 8 HOURS
     Route: 049

REACTIONS (3)
  - DEHYDRATION [None]
  - PAIN [None]
  - VOMITING [None]
